FAERS Safety Report 5034628-5 (Version None)
Quarter: 2006Q2

REPORT INFORMATION
  Report Type: 
  Country: None (occurrence: None)
  Receive Date: 20060626
  Receipt Date: 20060620
  Transmission Date: 20061013
  Serious: Yes (Hospitalization)
  Sender: FDA-Public Use
  Company Number: ES-MERCK-0606ESP00017

PATIENT
  Age: 33 Year
  Sex: Male

DRUGS (5)
  1. ZOCOR [Suspect]
     Indication: HYPERLIPIDAEMIA
     Route: 048
     Dates: start: 20030101, end: 20060401
  2. EVEROLIMUS [Suspect]
     Indication: HEART TRANSPLANT
     Route: 065
     Dates: start: 20050501
  3. CYCLOSPORINE [Suspect]
     Indication: HEART TRANSPLANT
     Route: 065
     Dates: start: 19990101
  4. ASPIRIN [Concomitant]
     Indication: MYOCARDIAL ISCHAEMIA
     Route: 065
  5. CARVEDILOL [Concomitant]
     Indication: MYOCARDIAL ISCHAEMIA
     Route: 065

REACTIONS (6)
  - BLOOD CREATINE PHOSPHOKINASE INCREASED [None]
  - DRUG INTERACTION [None]
  - MUSCLE SPASMS [None]
  - MYALGIA [None]
  - RENAL FAILURE ACUTE [None]
  - RHABDOMYOLYSIS [None]
